FAERS Safety Report 9538905 (Version 3)
Quarter: 2013Q4

REPORT INFORMATION
  Report Type: Report from Study
  Country: JP (occurrence: JP)
  Receive Date: 20130920
  Receipt Date: 20131227
  Transmission Date: 20140711
  Serious: Yes (Other)
  Sender: FDA-Public Use
  Company Number: JP-VERTEX PHARMACEUTICAL INC.-2012-024985

PATIENT
  Age: 48 Year
  Sex: Male

DRUGS (14)
  1. VX-950 (TELAPREVIR) [Suspect]
     Indication: CHRONIC HEPATITIS C
     Dosage: 2250 MG, QD
     Route: 048
     Dates: start: 20120803, end: 20120805
  2. VX-950 (TELAPREVIR) [Suspect]
     Dosage: 1500 MG, QD
     Route: 048
     Dates: start: 20120806
  3. PEGINTRON [Suspect]
     Indication: CHRONIC HEPATITIS C
     Dosage: 100 ?G, QW
     Route: 058
     Dates: start: 20120803, end: 20130115
  4. REBETOL [Suspect]
     Indication: CHRONIC HEPATITIS C
     Dosage: 800 MG, QD
     Route: 048
     Dates: start: 20120803, end: 20120917
  5. REBETOL [Suspect]
     Dosage: 600 MG, QD
     Route: 048
     Dates: start: 20120918, end: 20121015
  6. REBETOL [Suspect]
     Dosage: 400 MG, QD
     Route: 048
     Dates: start: 20121016
  7. REBETOL [Suspect]
     Dosage: 200 MG, ON ALTERNATE DAYS
     Route: 048
     Dates: start: 20121106, end: 20130115
  8. REBETOL [Suspect]
     Dosage: 400 MG, ON ALTERNATE DAYS
     Route: 048
     Dates: start: 20121107, end: 20130115
  9. GASMOTIN [Concomitant]
     Dosage: 15 MG, QD
     Route: 048
  10. THYRADIN S [Concomitant]
     Dosage: 100 ?G, QD
     Route: 048
     Dates: start: 20120803
  11. TALION [Concomitant]
     Dosage: 20 MG, QD
     Route: 048
     Dates: start: 20120803
  12. FAMOTIDINE D [Concomitant]
     Dosage: 20 MG, QD
     Route: 048
     Dates: start: 20120803
  13. RIKKUNSHITO [Concomitant]
     Dosage: 7.5 G, QD
     Route: 048
     Dates: start: 20120803
  14. CALONAL [Concomitant]
     Dosage: 400 MG, QD
     Route: 048
     Dates: start: 20120802, end: 20120806

REACTIONS (2)
  - Haemoglobin decreased [Recovered/Resolved]
  - Intracranial aneurysm [Recovered/Resolved]
